FAERS Safety Report 13170942 (Version 1)
Quarter: 2017Q1

REPORT INFORMATION
  Report Type: Spontaneous
  Country: US (occurrence: US)
  Receive Date: 20170131
  Receipt Date: 20170131
  Transmission Date: 20170428
  Serious: No
  Sender: FDA-Public Use
  Company Number: US-ABBVIE-16K-163-1754790-00

PATIENT
  Age: 26 Year
  Sex: Female

DRUGS (2)
  1. ZOLOFT [Interacting]
     Active Substance: SERTRALINE HYDROCHLORIDE
     Indication: PRODUCT USED FOR UNKNOWN INDICATION
     Route: 065
  2. HUMIRA [Suspect]
     Active Substance: ADALIMUMAB
     Indication: COLITIS ULCERATIVE
     Route: 058

REACTIONS (3)
  - Insomnia [Unknown]
  - Drug interaction [Unknown]
  - Night sweats [Unknown]

NARRATIVE: CASE EVENT DATE: 2016
